FAERS Safety Report 9205259 (Version 4)
Quarter: 2013Q3

REPORT INFORMATION
  Report Type: Spontaneous
  Country: US (occurrence: US)
  Receive Date: 20130402
  Receipt Date: 20130821
  Transmission Date: 20140515
  Serious: Yes (Hospitalization, Disabling, Other)
  Sender: FDA-Public Use
  Company Number: US-009507513-1303USA012849

PATIENT
  Sex: Female
  Weight: 96.6 kg

DRUGS (1)
  1. NUVARING [Suspect]
     Indication: CONTRACEPTION
     Dosage: UNK
     Route: 067
     Dates: start: 200912, end: 201211

REACTIONS (20)
  - Subclavian artery embolism [Unknown]
  - Thromboembolectomy [Unknown]
  - Gallbladder disorder [Unknown]
  - Immobile [Unknown]
  - Deep vein thrombosis [Unknown]
  - Cardiac disorder [Unknown]
  - High risk pregnancy [Unknown]
  - Pyrexia [Unknown]
  - Cholecystectomy [Unknown]
  - Hypersensitivity [Not Recovered/Not Resolved]
  - Coagulopathy [Unknown]
  - Protein C deficiency [Unknown]
  - Hyperkalaemia [Unknown]
  - Hypertension [Unknown]
  - Hyponatraemia [Unknown]
  - Dizziness [Unknown]
  - Gastrooesophageal reflux disease [Unknown]
  - Protein deficiency anaemia [Unknown]
  - Constipation [Unknown]
  - Headache [Unknown]
